FAERS Safety Report 24942031 (Version 1)
Quarter: 2025Q1

REPORT INFORMATION
  Report Type: Spontaneous
  Country: FR (occurrence: FR)
  Receive Date: 20250207
  Receipt Date: 20250207
  Transmission Date: 20250409
  Serious: Yes (Hospitalization)
  Sender: MYLAN
  Company Number: None

PATIENT
  Age: 61 Year
  Sex: Male
  Weight: 94 kg

DRUGS (7)
  1. SERTRALINE [Suspect]
     Active Substance: SERTRALINE HYDROCHLORIDE
     Indication: Schizophrenia
     Dosage: 50 MILLIGRAM, BID (12 HOURS)
     Route: 048
     Dates: start: 20241018
  2. RISPERIDONE [Suspect]
     Active Substance: RISPERIDONE
     Indication: Schizophrenia
     Dosage: 2 MILLIGRAM, QD (MORNING)
     Route: 048
     Dates: start: 20241021
  3. RISPERIDONE [Suspect]
     Active Substance: RISPERIDONE
     Dosage: 4 MILLIGRAM, QD (EVENING)
     Route: 048
     Dates: start: 20241021
  4. MIANSERIN [Suspect]
     Active Substance: MIANSERIN
     Indication: Schizophrenia
     Dosage: 1 DOSAGE FORM, QD
     Route: 048
     Dates: start: 20241216
  5. LOXAPINE [Suspect]
     Active Substance: LOXAPINE
     Indication: Schizophrenia
     Dosage: 50 MILLIGRAM, QD
     Route: 048
     Dates: start: 20241121
  6. BRINTELLIX [Suspect]
     Active Substance: VORTIOXETINE HYDROBROMIDE
     Indication: Schizophrenia
     Dosage: 2 DOSAGE FORM, QD (MORNING)
     Route: 048
     Dates: start: 20241129
  7. OXAZEPAM [Suspect]
     Active Substance: OXAZEPAM
     Indication: Schizophrenia
     Route: 048
     Dates: start: 20241129

REACTIONS (1)
  - Cardiac failure [Recovering/Resolving]

NARRATIVE: CASE EVENT DATE: 20250102
